FAERS Safety Report 17925166 (Version 1)
Quarter: 2020Q2

REPORT INFORMATION
  Report Type: Spontaneous
  Country: US (occurrence: US)
  Receive Date: 20200622
  Receipt Date: 20200622
  Transmission Date: 20200714
  Serious: Yes (Hospitalization)
  Sender: FDA-Public Use
  Company Number: US-VERTEX PHARMACEUTICALS-2020-013211

PATIENT
  Sex: Female

DRUGS (19)
  1. URSODIOL. [Concomitant]
     Active Substance: URSODIOL
     Dosage: 300MG CAPSULE
  2. VITAMIN A [RETINOL] [Concomitant]
     Active Substance: RETINOL
     Dosage: 10,000 UNIT CAPSULE
  3. MEGACE [Concomitant]
     Active Substance: MEGESTROL ACETATE
     Dosage: 625MG/ 5ML SUSPENSION
     Route: 048
  4. BUPROPION HCL [Concomitant]
     Active Substance: BUPROPION HYDROCHLORIDE
     Dosage: SR 150MG TAB SR 12H
  5. IRON [Concomitant]
     Active Substance: IRON
     Dosage: 159(45)MG TABLET ER
  6. ZINC. [Concomitant]
     Active Substance: ZINC
     Dosage: 50MG TABLET
  7. COLACE [Concomitant]
     Active Substance: DOCUSATE SODIUM
     Dosage: 100 MG CAPSULE
  8. VITAMIN K [PHYTOMENADIONE] [Concomitant]
     Dosage: 100 MCG TABLET
  9. ALBUTEROL SULFATE. [Concomitant]
     Active Substance: ALBUTEROL SULFATE
  10. CREON [Concomitant]
     Active Substance: PANCRELIPASE AMYLASE\PANCRELIPASE LIPASE\PANCRELIPASE PROTEASE
     Dosage: 12K-38K-60 CAPSULE DR
  11. TRIKAFTA [Suspect]
     Active Substance: ELEXACAFTOR\IVACAFTOR\TEZACAFTOR
     Indication: CYSTIC FIBROSIS
     Dosage: 2 TAB(100 MG ELEXACAFTOR/ 50 MG TEZACAFTOR/ 75 MG IVACAFTOR)AM AND1 TAB(150MG IVACAFTOR)PM
     Route: 048
  12. MIRALAX [Concomitant]
     Active Substance: POLYETHYLENE GLYCOL 3350
     Dosage: 17G/ DOSE POWDER
  13. FLUTICASONE PROPIONATE. [Concomitant]
     Active Substance: FLUTICASONE PROPIONATE
  14. PULMOZYME [Concomitant]
     Active Substance: DORNASE ALFA
     Dosage: 1MG/ML SOLUTION
  15. HYPERSAL [Concomitant]
     Active Substance: SODIUM CHLORIDE
     Dosage: 7%
  16. VITAMIN D [COLECALCIFEROL] [Concomitant]
     Active Substance: CHOLECALCIFEROL
     Dosage: VITAMIN D 400, 400 UNIT TABLET
  17. OMEPRAZOLE. [Concomitant]
     Active Substance: OMEPRAZOLE
     Dosage: 10MG CAPSULE DR
  18. AZITHROMYCIN ANHYDROUS. [Concomitant]
     Active Substance: AZITHROMYCIN ANHYDROUS
     Dosage: 250MG TABLET
  19. PROAIR HFA [Concomitant]
     Active Substance: ALBUTEROL SULFATE
     Dosage: 90MCG HFA AER AD

REACTIONS (1)
  - Hospitalisation [Not Recovered/Not Resolved]
